FAERS Safety Report 5705990-2 (Version None)
Quarter: 2008Q2

REPORT INFORMATION
  Report Type: 
  Country: None (occurrence: None)
  Receive Date: 20080415
  Receipt Date: 20080408
  Transmission Date: 20081010
  Serious: Yes (Death)
  Sender: FDA-Public Use
  Company Number: JP-AVENTIS-200811054JP

PATIENT
  Age: 68 Year
  Sex: Male
  Weight: 64 kg

DRUGS (35)
  1. TAXOTERE [Suspect]
     Route: 041
     Dates: start: 20040721, end: 20040901
  2. DECADRON [Concomitant]
     Indication: PREMEDICATION
     Route: 051
     Dates: start: 20040721, end: 20040721
  3. DECADRON [Concomitant]
     Route: 051
     Dates: start: 20040811, end: 20040811
  4. DECADRON [Concomitant]
     Route: 051
     Dates: start: 20040901, end: 20040901
  5. ZANTAC [Concomitant]
     Indication: PREMEDICATION
     Route: 051
     Dates: start: 20040721, end: 20040721
  6. ZANTAC [Concomitant]
     Route: 051
     Dates: start: 20040811, end: 20040811
  7. ZANTAC [Concomitant]
     Route: 051
     Dates: start: 20040901, end: 20040901
  8. PROHEPARUM [Concomitant]
     Dosage: DOSE: 6 TABLETS/DAY
     Route: 048
     Dates: end: 20040803
  9. PROHEPARUM [Concomitant]
     Dosage: DOSE: 6 TABLETS/DAY
     Route: 048
     Dates: start: 20040916, end: 20040927
  10. NU-LOTAN [Concomitant]
     Route: 048
     Dates: end: 20040803
  11. NU-LOTAN [Concomitant]
     Route: 048
     Dates: start: 20040811, end: 20040907
  12. NU-LOTAN [Concomitant]
     Route: 048
     Dates: start: 20040913, end: 20040927
  13. MUCOSTA [Concomitant]
     Route: 048
     Dates: end: 20040803
  14. MUCOSTA [Concomitant]
     Route: 048
     Dates: start: 20040811, end: 20040927
  15. RINDERON                           /00008501/ [Concomitant]
     Route: 048
     Dates: end: 20040723
  16. LOXONIN                            /00890701/ [Concomitant]
     Dates: start: 20040721
  17. MILTAX [Concomitant]
     Dates: start: 20040721
  18. ISOTONIC SODIUM CHLORIDE SOLUTION [Concomitant]
     Route: 051
     Dates: start: 20040721, end: 20040721
  19. ISOTONIC SODIUM CHLORIDE SOLUTION [Concomitant]
     Route: 051
     Dates: start: 20040721, end: 20040721
  20. ISOTONIC SODIUM CHLORIDE SOLUTION [Concomitant]
     Route: 051
     Dates: start: 20040811, end: 20040811
  21. ISOTONIC SODIUM CHLORIDE SOLUTION [Concomitant]
     Route: 051
     Dates: start: 20040811, end: 20040811
  22. ISOTONIC SODIUM CHLORIDE SOLUTION [Concomitant]
     Route: 051
     Dates: start: 20040901, end: 20040901
  23. ISOTONIC SODIUM CHLORIDE SOLUTION [Concomitant]
     Route: 051
     Dates: start: 20040901, end: 20040901
  24. ISOTONIC SODIUM CHLORIDE SOLUTION [Concomitant]
     Route: 051
     Dates: start: 20040913, end: 20040927
  25. GLUCOSE [Concomitant]
     Route: 051
     Dates: start: 20040721, end: 20040721
  26. GLUCOSE [Concomitant]
     Route: 051
     Dates: start: 20040811, end: 20040811
  27. GLUCOSE [Concomitant]
     Route: 051
     Dates: start: 20040901, end: 20040901
  28. GLUCOSE [Concomitant]
     Route: 051
     Dates: start: 20040922, end: 20040927
  29. BANAN [Concomitant]
     Route: 048
     Dates: start: 20040901, end: 20040903
  30. CRAVIT [Concomitant]
     Route: 048
     Dates: start: 20040906, end: 20040912
  31. PURSENNID                          /00571901/ [Concomitant]
     Dates: start: 20040908
  32. PURSENNID                          /00571901/ [Concomitant]
     Route: 048
     Dates: start: 20040916, end: 20040927
  33. SOLDEM 3A [Concomitant]
     Route: 051
     Dates: start: 20040908, end: 20040908
  34. PARAPLATIN [Concomitant]
     Dates: start: 20040622, end: 20040622
  35. TAXOL [Concomitant]
     Dates: start: 20040622, end: 20040706

REACTIONS (1)
  - INTERSTITIAL LUNG DISEASE [None]
